FAERS Safety Report 8294613-7 (Version None)
Quarter: 2012Q2

REPORT INFORMATION
  Report Type: 
  Country: None (occurrence: None)
  Receive Date: 20120418
  Receipt Date: 20120413
  Transmission Date: 20120825
  Serious: Yes (Hospitalization)
  Sender: FDA-Public Use
  Company Number: US-ACTELION-A-NJ2012-63851

PATIENT

DRUGS (2)
  1. REVATIO [Concomitant]
  2. VENTAVIS [Suspect]
     Indication: PULMONARY ARTERIAL HYPERTENSION
     Dosage: UNK
     Route: 055
     Dates: start: 20110203

REACTIONS (6)
  - BLOOD PRESSURE INCREASED [None]
  - NAUSEA [None]
  - PYREXIA [None]
  - VOMITING [None]
  - CHEST PAIN [None]
  - INFLUENZA [None]
